FAERS Safety Report 16647201 (Version 5)
Quarter: 2019Q3

REPORT INFORMATION
  Report Type: Spontaneous
  Country: FR (occurrence: FR)
  Receive Date: 20190730
  Receipt Date: 20190917
  Transmission Date: 20191004
  Serious: Yes (Other)
  Sender: FDA-Public Use
  Company Number: FR-PFIZER INC-2019321724

PATIENT
  Age: 81 Year
  Sex: Female

DRUGS (6)
  1. EPIRUBICIN HCL [Suspect]
     Active Substance: EPIRUBICIN HYDROCHLORIDE
     Dosage: UNK (SECOND CURE OF EC75)
     Dates: start: 20180524
  2. CYCLOPHOSPHAMIDE. [Suspect]
     Active Substance: CYCLOPHOSPHAMIDE
     Indication: BREAST CANCER
     Dosage: UNK, CYCLIC
     Dates: start: 20180502
  3. CYCLOPHOSPHAMIDE. [Suspect]
     Active Substance: CYCLOPHOSPHAMIDE
     Dosage: UNK, CYCLIC (THIRD CURE OF EC75)
     Dates: start: 20180613
  4. EPIRUBICIN HCL [Suspect]
     Active Substance: EPIRUBICIN HYDROCHLORIDE
     Indication: BREAST CANCER
     Dosage: UNK
     Dates: start: 20180502
  5. EPIRUBICIN HCL [Suspect]
     Active Substance: EPIRUBICIN HYDROCHLORIDE
     Dosage: UNK (THIRD CURE OF EC75)
     Dates: start: 20180613
  6. CYCLOPHOSPHAMIDE. [Suspect]
     Active Substance: CYCLOPHOSPHAMIDE
     Dosage: UNK, CYCLIC (SECOND CURE OF EC75)
     Dates: start: 20180524

REACTIONS (1)
  - Subacute cutaneous lupus erythematosus [Unknown]

NARRATIVE: CASE EVENT DATE: 2018
